FAERS Safety Report 11820005 (Version 1)
Quarter: 2015Q4

REPORT INFORMATION
  Report Type: Spontaneous
  Country: US (occurrence: US)
  Receive Date: 20151210
  Receipt Date: 20151210
  Transmission Date: 20160305
  Serious: Yes (Hospitalization, Other)
  Sender: FDA-Public Use
  Company Number: US-ALVOGEN-2015-ALVOGEN-020189

PATIENT
  Age: 76 Year
  Sex: Male
  Weight: 79.92 kg

DRUGS (2)
  1. LISINOPRIL. [Suspect]
     Active Substance: LISINOPRIL
     Indication: HYPERTENSION
     Route: 048
     Dates: start: 2008, end: 20150109
  2. ALLOPURINOL. [Concomitant]
     Active Substance: ALLOPURINOL
     Indication: GOUT
     Dates: start: 20130507

REACTIONS (6)
  - Atrial flutter [Unknown]
  - Sinus tachycardia [None]
  - Atrial fibrillation [Unknown]
  - Neutropenia [None]
  - Pyrexia [None]
  - Hypotension [Recovered/Resolved]

NARRATIVE: CASE EVENT DATE: 20150109
